FAERS Safety Report 7042539-9 (Version None)
Quarter: 2010Q4

REPORT INFORMATION
  Report Type: 
  Country: None (occurrence: None)
  Receive Date: 20101013
  Receipt Date: 20100416
  Transmission Date: 20110411
  Serious: No
  Sender: FDA-Public Use
  Company Number: US-ASTRAZENECA-2010SE17028

PATIENT
  Sex: Male

DRUGS (4)
  1. SYMBICORT [Suspect]
     Indication: CHRONIC OBSTRUCTIVE PULMONARY DISEASE
     Dosage: 320 UG
     Route: 055
     Dates: start: 20090603, end: 20090701
  2. SYMBICORT [Suspect]
     Dosage: 320 UG
     Route: 055
     Dates: start: 20100301, end: 20100410
  3. SYMBICORT [Suspect]
     Dosage: 1600 UG
     Route: 055
     Dates: start: 20100410, end: 20100414
  4. COMBIVENT [Concomitant]
     Dosage: TWO PUFFS AS NEEDED

REACTIONS (3)
  - DYSPNOEA [None]
  - PALPITATIONS [None]
  - RESPIRATORY TRACT INFLAMMATION [None]
